FAERS Safety Report 7262244-3 (Version None)
Quarter: 2011Q1

REPORT INFORMATION
  Report Type: 
  Country: None (occurrence: None)
  Receive Date: 20110130
  Receipt Date: 20101124
  Transmission Date: 20110831
  Serious: No
  Sender: FDA-Public Use
  Company Number: US-ABBOTT-10P-163-0687711-00

PATIENT
  Sex: Female
  Weight: 86.26 kg

DRUGS (14)
  1. AMLODIPINE [Concomitant]
     Indication: HYPERTENSION
  2. BUMEX [Concomitant]
     Indication: OEDEMA PERIPHERAL
  3. ALLEVE [Concomitant]
     Indication: PAIN
  4. DIOVAN [Concomitant]
     Indication: HYPERTENSION
  5. TRAMADOL HCL [Concomitant]
     Indication: PAIN
  6. FOLIC ACID [Concomitant]
     Indication: PRODUCT USED FOR UNKNOWN INDICATION
  7. VITAMIN D [Concomitant]
     Indication: PRODUCT USED FOR UNKNOWN INDICATION
  8. BUMEX [Concomitant]
     Indication: JOINT SWELLING
  9. CALCIUM [Concomitant]
     Indication: PRODUCT USED FOR UNKNOWN INDICATION
  10. HUMIRA [Suspect]
     Indication: RHEUMATOID ARTHRITIS
     Dates: start: 20060101, end: 20101001
  11. METHOTREXATE [Concomitant]
     Indication: RHEUMATOID ARTHRITIS
     Dates: end: 20101001
  12. METOPROLOL [Concomitant]
     Indication: HYPERTENSION
  13. BUMEX [Concomitant]
     Indication: HYPERTENSION
  14. FISH OIL [Concomitant]
     Indication: PRODUCT USED FOR UNKNOWN INDICATION

REACTIONS (4)
  - TUBERCULIN TEST POSITIVE [None]
  - CHONDROPATHY [None]
  - ARTHRALGIA [None]
  - RHEUMATOID ARTHRITIS [None]
